FAERS Safety Report 17402704 (Version 2)
Quarter: 2020Q1

REPORT INFORMATION
  Report Type: Spontaneous
  Country: US (occurrence: US)
  Receive Date: 20200211
  Receipt Date: 20200311
  Transmission Date: 20200409
  Serious: Yes (Other)
  Sender: FDA-Public Use
  Company Number: US-COVIS PHARMA B.V.-2020COV00054

PATIENT
  Age: 44 Year
  Sex: Female
  Weight: 69.84 kg

DRUGS (26)
  1. PROVERA [Concomitant]
     Active Substance: MEDROXYPROGESTERONE ACETATE
  2. METOPROLOL. [Suspect]
     Active Substance: METOPROLOL
  3. OMEPRAZOLE. [Concomitant]
     Active Substance: OMEPRAZOLE
  4. PRAZOSIN HCL [Concomitant]
     Active Substance: PRAZOSIN HYDROCHLORIDE
  5. CATHFLO ACTIVASE [Concomitant]
     Active Substance: ALTEPLASE
  6. LEXAPRO [Concomitant]
     Active Substance: ESCITALOPRAM OXALATE
  7. THERAGRAN-M [Concomitant]
     Active Substance: VITAMINS
  8. ZANAFLEX [Suspect]
     Active Substance: TIZANIDINE HYDROCHLORIDE
     Indication: PAIN
     Dosage: UNK
  9. ADDERALL [Concomitant]
     Active Substance: AMPHETAMINE ASPARTATE\AMPHETAMINE SULFATE\DEXTROAMPHETAMINE SACCHARATE\DEXTROAMPHETAMINE SULFATE
  10. COLCRYS [Concomitant]
     Active Substance: COLCHICINE
  11. OSCAL 500 [Concomitant]
  12. SENOKOT-S [Concomitant]
     Active Substance: DOCUSATE SODIUM\SENNOSIDES
  13. XTAMPZA ER [Suspect]
     Active Substance: OXYCODONE
     Indication: PAIN
     Dosage: 27 MG, 2X/DAY
     Route: 048
     Dates: start: 201907, end: 2019
  14. PREMARIN [Concomitant]
     Active Substance: ESTROGENS, CONJUGATED
  15. PRILOSEC [Concomitant]
     Active Substance: OMEPRAZOLE MAGNESIUM
  16. OXYCODONE HYDROCHLORIDE. [Concomitant]
     Active Substance: OXYCODONE HYDROCHLORIDE
  17. BUPROPION HCL ER (XL) [Concomitant]
     Active Substance: BUPROPION HYDROCHLORIDE
  18. ALBUTEROL SULFATE. [Concomitant]
     Active Substance: ALBUTEROL SULFATE
  19. ATIVAN [Concomitant]
     Active Substance: LORAZEPAM
  20. TIZANIDINE HCL [Concomitant]
     Active Substance: TIZANIDINE HYDROCHLORIDE
  21. PRAZOSIN HCL [Concomitant]
     Active Substance: PRAZOSIN HYDROCHLORIDE
  22. MEROPENEM. [Concomitant]
     Active Substance: MEROPENEM
  23. NEXIUM [Concomitant]
     Active Substance: ESOMEPRAZOLE MAGNESIUM
  24. PERCOCET [Concomitant]
     Active Substance: ACETAMINOPHEN\OXYCODONE HYDROCHLORIDE
  25. VOLTAREN [Concomitant]
     Active Substance: DICLOFENAC SODIUM
  26. ERGOCALCIFEROL. [Concomitant]
     Active Substance: ERGOCALCIFEROL

REACTIONS (13)
  - Dehydration [Recovered/Resolved]
  - Off label use [Unknown]
  - Pain [Recovered/Resolved]
  - Fibrin D dimer increased [Unknown]
  - Bronchial hyperreactivity [Recovered/Resolved]
  - Urticaria [Recovered/Resolved]
  - Sinus tachycardia [Recovered/Resolved]
  - Pulmonary mass [Unknown]
  - Rash erythematous [Recovered/Resolved]
  - Bronchitis [Recovered/Resolved]
  - Pruritus [Recovered/Resolved]
  - Rash maculo-papular [Recovered/Resolved]
  - Alcohol poisoning [Recovering/Resolving]

NARRATIVE: CASE EVENT DATE: 20190728
